FAERS Safety Report 8824701 (Version 3)
Quarter: 2012Q4

REPORT INFORMATION
  Report Type: 
  Country: IT (occurrence: IT)
  Receive Date: 20121004
  Receipt Date: 20121016
  Transmission Date: 20130627
  Serious: Yes (Hospitalization)
  Sender: FDA-Public Use
  Company Number: IT-SANOFI-AVENTIS-2012SA071218

PATIENT
  Age: 48 Year
  Sex: Female

DRUGS (4)
  1. STILNOX [Suspect]
     Indication: SUICIDE ATTEMPT
     Route: 048
     Dates: start: 20120917, end: 20120917
  2. LENDORMIN [Suspect]
     Indication: SUICIDE ATTEMPT
     Route: 048
     Dates: start: 20120917, end: 20120917
  3. PLAQUENIL [Concomitant]
     Dosage: strength: 200 mg
     Route: 048
  4. DELTACORTENE [Concomitant]
     Dosage: strength: 25 mg
     Route: 048

REACTIONS (4)
  - Suicide attempt [Recovering/Resolving]
  - Blood creatine phosphokinase increased [Recovering/Resolving]
  - Intentional overdose [Unknown]
  - Loss of consciousness [Recovering/Resolving]
